FAERS Safety Report 12817283 (Version 1)
Quarter: 2016Q4

REPORT INFORMATION
  Report Type: Spontaneous
  Country: US (occurrence: US)
  Receive Date: 20161005
  Receipt Date: 20161005
  Transmission Date: 20170207
  Serious: Yes (Hospitalization, Disabling, Other)
  Sender: FDA-Public Use
  Company Number: None

PATIENT
  Age: 25 Year
  Sex: Male
  Weight: 78.75 kg

DRUGS (3)
  1. VITAMIN D3 [Concomitant]
     Active Substance: CHOLECALCIFEROL
  2. FINASTERIDE 1 MG [Suspect]
     Active Substance: FINASTERIDE
     Indication: ALOPECIA
     Dosage: ?          QUANTITY:1 TABLET(S);?
     Route: 048
     Dates: start: 20160816, end: 20160825
  3. MULTIVITAMIN [Concomitant]
     Active Substance: VITAMINS

REACTIONS (21)
  - Listless [None]
  - Anxiety [None]
  - Insomnia [None]
  - Asthenia [None]
  - Gastrooesophageal reflux disease [None]
  - Feeling abnormal [None]
  - Panic attack [None]
  - Fear [None]
  - Hormone level abnormal [None]
  - Hypogonadism [None]
  - Depression [None]
  - Memory impairment [None]
  - Malaise [None]
  - Erectile dysfunction [None]
  - Penile size reduced [None]
  - Drug ineffective [None]
  - Weight decreased [None]
  - Mental impairment [None]
  - Loss of libido [None]
  - Muscle atrophy [None]
  - Blood testosterone decreased [None]

NARRATIVE: CASE EVENT DATE: 20160826
